FAERS Safety Report 6336361-6 (Version None)
Quarter: 2009Q3

REPORT INFORMATION
  Report Type: 
  Country: None (occurrence: None)
  Receive Date: 20090901
  Receipt Date: 20090820
  Transmission Date: 20100115
  Serious: Yes (Hospitalization, Other)
  Sender: FDA-Public Use
  Company Number: JP-ELI_LILLY_AND_COMPANY-JP200908003339

PATIENT
  Age: 25 Year
  Sex: Male

DRUGS (5)
  1. STRATTERA [Suspect]
     Indication: ATTENTION DEFICIT/HYPERACTIVITY DISORDER
     Route: 048
     Dates: start: 20090727, end: 20090727
  2. STRATTERA [Suspect]
     Dosage: 50 MG, DAILY (1/D)
     Route: 048
     Dates: start: 20090728, end: 20090803
  3. STRATTERA [Suspect]
     Dosage: 75 MG, DAILY (1/D)
     Route: 048
     Dates: start: 20090804
  4. CARBAMAZEPINE [Concomitant]
     Indication: SEDATION
     Dosage: 400 MG, DAILY (1/D)
     Route: 048
     Dates: start: 20071201
  5. HIRNAMIN [Concomitant]
     Indication: SEDATION
     Dosage: 150 MG, DAILY (1/D)
     Route: 048
     Dates: start: 20071201

REACTIONS (3)
  - FRACTURE [None]
  - OFF LABEL USE [None]
  - SUICIDE ATTEMPT [None]
